FAERS Safety Report 13788495 (Version 1)
Quarter: 2017Q3

REPORT INFORMATION
  Report Type: Spontaneous
  Country: US (occurrence: US)
  Receive Date: 20170725
  Receipt Date: 20170725
  Transmission Date: 20171127
  Serious: No
  Sender: FDA-Public Use
  Company Number: US-JNJFOC-20170626433

PATIENT
  Sex: Female
  Weight: 59 kg

DRUGS (5)
  1. ACYCLOVIR. [Concomitant]
     Active Substance: ACYCLOVIR
  2. DOXYCYCLINE. [Concomitant]
     Active Substance: DOXYCYCLINE
  3. PREDNISONE. [Concomitant]
     Active Substance: PREDNISONE
  4. LEVOTHYROXINE. [Concomitant]
     Active Substance: LEVOTHYROXINE
  5. IMBRUVICA [Suspect]
     Active Substance: IBRUTINIB
     Indication: CHRONIC LYMPHOCYTIC LEUKAEMIA
     Route: 048
     Dates: start: 20160316

REACTIONS (1)
  - Rash [Unknown]
